FAERS Safety Report 19167865 (Version 2)
Quarter: 2021Q2

REPORT INFORMATION
  Report Type: Spontaneous
  Country: US (occurrence: US)
  Receive Date: 20210422
  Receipt Date: 20210427
  Transmission Date: 20210717
  Serious: Yes (Other)
  Sender: FDA-Public Use
  Company Number: US-SA-2021SA129184

PATIENT
  Age: 57 Year
  Sex: Female

DRUGS (2)
  1. DUPILUMAB [Suspect]
     Active Substance: DUPILUMAB
     Indication: DERMATITIS ATOPIC
     Dosage: 300 MG, QOW
     Route: 058
  2. DUPILUMAB [Suspect]
     Active Substance: DUPILUMAB
     Dosage: UNK

REACTIONS (10)
  - Iris adhesions [Unknown]
  - Papilloedema [Unknown]
  - Photophobia [Recovered/Resolved]
  - Uveitis [Recovered/Resolved]
  - Vitreous floaters [Unknown]
  - Vision blurred [Recovered/Resolved]
  - Chorioretinal folds [Unknown]
  - Anterior chamber inflammation [Not Recovered/Not Resolved]
  - Eye inflammation [Recovered/Resolved]
  - Eye pain [Recovered/Resolved]
